FAERS Safety Report 5601368-0 (Version None)
Quarter: 2008Q1

REPORT INFORMATION
  Report Type: 
  Country: None (occurrence: None)
  Receive Date: 20080109
  Receipt Date: 20070905
  Transmission Date: 20080703
  Serious: Yes (Other)
  Sender: FDA-Public Use
  Company Number: WAES 0709USA00712

PATIENT
  Age: 72 Year
  Sex: Female

DRUGS (2)
  1. DECADRON [Suspect]
     Indication: MULTIPLE MYELOMA
     Dosage: PO
     Route: 048
  2. REVLIMID [Suspect]
     Indication: MULTIPLE MYELOMA
     Dosage: 10 MG/DAILY/PO
     Route: 048
     Dates: start: 20070412

REACTIONS (2)
  - IMPAIRED HEALING [None]
  - SQUAMOUS CELL CARCINOMA [None]
